FAERS Safety Report 4276596-X (Version None)
Quarter: 2004Q1

REPORT INFORMATION
  Report Type: 
  Country: None (occurrence: None)
  Receive Date: 20040120
  Receipt Date: 20040105
  Transmission Date: 20041129
  Serious: Yes (Other)
  Sender: FDA-Public Use
  Company Number: A0443399A

PATIENT
  Age: 35 Year
  Sex: Female

DRUGS (1)
  1. NICORETTE [Suspect]
     Indication: EX-SMOKER
     Dosage: 4 MG/ TRANSBUCC

REACTIONS (4)
  - CONVULSION [None]
  - DRUG DEPENDENCE [None]
  - IRRITABILITY [None]
  - PARTIAL SEIZURES [None]
